FAERS Safety Report 24350093 (Version 1)
Quarter: 2024Q3

REPORT INFORMATION
  Report Type: Spontaneous
  Country: US (occurrence: US)
  Receive Date: 20240923
  Receipt Date: 20240923
  Transmission Date: 20241017
  Serious: Yes (Other)
  Sender: Unknown Manufacturer
  Company Number: US-MELINTA THERAPEUTICS, LLC-US-MLNT-24-00207

PATIENT
  Age: 61 Year
  Sex: Male
  Weight: 123.83 kg

DRUGS (7)
  1. ORBACTIV [Suspect]
     Active Substance: ORITAVANCIN
     Indication: Product used for unknown indication
     Dosage: 1200 MILLIGRAM, SINGLE
     Route: 041
     Dates: start: 20231228, end: 20231228
  2. ORBACTIV [Suspect]
     Active Substance: ORITAVANCIN
     Dosage: UNK
     Route: 041
  3. ORBACTIV [Suspect]
     Active Substance: ORITAVANCIN
     Dosage: UNK
     Route: 041
  4. BENADRYL [Concomitant]
     Active Substance: DIPHENHYDRAMINE HYDROCHLORIDE
     Indication: Premedication
     Dosage: 25 MILLIGRAM
     Route: 042
     Dates: start: 20231228, end: 20231228
  5. TYLENOL [Concomitant]
     Active Substance: ACETAMINOPHEN
     Indication: Premedication
     Dosage: 500 MILLIGRAM X2
     Route: 048
     Dates: start: 20231228, end: 20231228
  6. DECADRON [Concomitant]
     Active Substance: DEXAMETHASONE
     Indication: Premedication
     Dosage: 4 MILLIGRAM
     Route: 042
     Dates: start: 20231228, end: 20231228
  7. NUZYRA [Concomitant]
     Active Substance: OMADACYCLINE
     Indication: Product used for unknown indication
     Dosage: 100 MILLIGRAM, QD
     Route: 042
     Dates: end: 20231219

REACTIONS (5)
  - Vancomycin infusion reaction [Recovered/Resolved]
  - Heart rate decreased [Recovered/Resolved]
  - Blood pressure abnormal [Recovered/Resolved]
  - Flushing [Recovered/Resolved]
  - Multiple use of single-use product [Recovered/Resolved]

NARRATIVE: CASE EVENT DATE: 20231228
